FAERS Safety Report 17746207 (Version 2)
Quarter: 2020Q2

REPORT INFORMATION
  Report Type: Report from Study
  Country: US (occurrence: US)
  Receive Date: 20200505
  Receipt Date: 20200515
  Transmission Date: 20200714
  Serious: Yes (Hospitalization, Other)
  Sender: FDA-Public Use
  Company Number: US-PFIZER INC-2020177878

PATIENT
  Age: 51 Year
  Sex: Female
  Weight: 131.52 kg

DRUGS (7)
  1. SILDENAFIL CITRATE. [Suspect]
     Active Substance: SILDENAFIL CITRATE
     Dosage: UNK
     Dates: end: 202004
  2. TYVASO [Suspect]
     Active Substance: TREPROSTINIL
     Dosage: UNK, 4X/DAY(18-54 ?G (3-9 BREATHS)FOUR TIMES A DAY (QID) VIA INHALATION (IH) ROUTE)
     Dates: start: 20191212
  3. APIXABAN [Suspect]
     Active Substance: APIXABAN
     Dosage: UNK
  4. TYVASO [Suspect]
     Active Substance: TREPROSTINIL
     Dosage: UNK
  5. LETAIRIS [Concomitant]
     Active Substance: AMBRISENTAN
     Dosage: UNK
  6. TYVASO [Suspect]
     Active Substance: TREPROSTINIL
     Indication: PULMONARY ARTERIAL HYPERTENSION
     Dosage: UNK, 4X/DAY (60-120 ?G (10-20 BREATHS) FOUR TIMES A DAY VIA IH ROUTE)
  7. ADEMPAS [Concomitant]
     Active Substance: RIOCIGUAT
     Dosage: UNK
     Dates: start: 2020

REACTIONS (4)
  - Haemorrhage [Unknown]
  - Syncope [Unknown]
  - Dizziness [Unknown]
  - Fall [Recovered/Resolved with Sequelae]

NARRATIVE: CASE EVENT DATE: 20200406
